FAERS Safety Report 19162584 (Version 4)
Quarter: 2021Q2

REPORT INFORMATION
  Report Type: Report from Study
  Country: None (occurrence: US)
  Receive Date: 20210420
  Receipt Date: 20210630
  Transmission Date: 20210717
  Serious: Yes (Hospitalization, Other)
  Sender: FDA-Public Use
  Company Number: US-ABBVIE-21K-163-3862060-00

PATIENT
  Age: 54 Year
  Sex: Male
  Weight: 92.62 kg

DRUGS (10)
  1. PREDNISONE. [Concomitant]
     Active Substance: PREDNISONE
     Dosage: DOSE DECREASED
  2. HUMIRA [Suspect]
     Active Substance: ADALIMUMAB
     Route: 058
     Dates: start: 20210318, end: 2021
  3. PREDNISONE. [Concomitant]
     Active Substance: PREDNISONE
     Indication: CROHN^S DISEASE
  4. HUMIRA [Suspect]
     Active Substance: ADALIMUMAB
     Route: 058
  5. HUMIRA [Suspect]
     Active Substance: ADALIMUMAB
     Route: 058
     Dates: start: 202104
  6. HUMIRA [Suspect]
     Active Substance: ADALIMUMAB
     Dosage: DAY 15
     Route: 058
  7. IMURAN [Concomitant]
     Active Substance: AZATHIOPRINE
     Indication: PRODUCT USED FOR UNKNOWN INDICATION
  8. PREDNISONE. [Concomitant]
     Active Substance: PREDNISONE
     Dosage: INCREASE UP DOSE TO 30 MG
  9. BENTYL [Concomitant]
     Active Substance: DICYCLOMINE HYDROCHLORIDE
     Indication: PRODUCT USED FOR UNKNOWN INDICATION
  10. HUMIRA [Suspect]
     Active Substance: ADALIMUMAB
     Indication: CROHN^S DISEASE
     Dosage: DAY 1
     Route: 058

REACTIONS (19)
  - Fatigue [Recovering/Resolving]
  - Rectal spasm [Unknown]
  - Rectal haemorrhage [Recovering/Resolving]
  - Diarrhoea [Recovering/Resolving]
  - Skin exfoliation [Not Recovered/Not Resolved]
  - Middle insomnia [Unknown]
  - Frequent bowel movements [Unknown]
  - Anxiety [Recovering/Resolving]
  - Weight decreased [Recovering/Resolving]
  - Loss of personal independence in daily activities [Not Recovered/Not Resolved]
  - Abnormal faeces [Recovering/Resolving]
  - Hyperhidrosis [Unknown]
  - Rectal prolapse [Unknown]
  - Depression [Not Recovered/Not Resolved]
  - Abdominal discomfort [Unknown]
  - Disability [Not Recovered/Not Resolved]
  - Rectal abscess [Unknown]
  - Abdominal pain [Recovering/Resolving]
  - Insomnia [Not Recovered/Not Resolved]

NARRATIVE: CASE EVENT DATE: 2021
